FAERS Safety Report 13826680 (Version 1)
Quarter: 2017Q3

REPORT INFORMATION
  Report Type: Spontaneous
  Country: US (occurrence: US)
  Receive Date: 20170802
  Receipt Date: 20170802
  Transmission Date: 20171127
  Serious: No
  Sender: FDA-Public Use
  Company Number: US-ROCHE-649402

PATIENT
  Age: 61 Year
  Sex: Female

DRUGS (3)
  1. HORMONES [Concomitant]
     Active Substance: UNSPECIFIED INGREDIENT
     Dosage: FORM: PILL
     Route: 065
  2. PREMARIN [Concomitant]
     Active Substance: ESTROGENS, CONJUGATED
     Route: 065
  3. BONIVA [Suspect]
     Active Substance: IBANDRONATE SODIUM
     Indication: OSTEOPOROSIS
     Route: 048
     Dates: start: 20090716, end: 20090716

REACTIONS (11)
  - Chills [Recovered/Resolved]
  - Mass [Unknown]
  - Dysstasia [Recovered/Resolved]
  - Eye swelling [Unknown]
  - Nausea [Not Recovered/Not Resolved]
  - Headache [Recovered/Resolved]
  - Lymphadenopathy [Unknown]
  - Muscle spasms [Recovered/Resolved]
  - Neck pain [Unknown]
  - Lymphadenopathy [Unknown]
  - Nausea [Unknown]

NARRATIVE: CASE EVENT DATE: 20090717
